FAERS Safety Report 23515415 (Version 2)
Quarter: 2024Q1

REPORT INFORMATION
  Report Type: Spontaneous
  Country: GB (occurrence: GB)
  Receive Date: 20240213
  Receipt Date: 20240219
  Transmission Date: 20240410
  Serious: Yes (Hospitalization)
  Sender: FDA-Public Use
  Company Number: GB-BAXTER-2024BAX010373

PATIENT
  Age: 38 Year
  Sex: Female

DRUGS (10)
  1. TOBRAMYCIN [Suspect]
     Active Substance: TOBRAMYCIN
     Indication: Product used for unknown indication
     Dosage: 340 MG ONCE A DAY, AS A DUAL THERAPY ALONGSIDE FOSFOMYCIN
     Route: 042
  2. FOSFOMYCIN [Suspect]
     Active Substance: FOSFOMYCIN
     Indication: Infection
     Dosage: TIME INTERVAL: 0.33333333 DAYS: 4 G THRICE A DAY
     Route: 042
     Dates: start: 20231130
  3. FOSFOMYCIN [Suspect]
     Active Substance: FOSFOMYCIN
     Indication: Infection
     Dosage: TIME INTERVAL: 0.33333333 DAYS: 2000 MG THRICE A DAY, AS A DUAL THERAPY ALONGSIDE 2 MU COLOMYCIN
     Route: 042
  4. FOSFOMYCIN [Suspect]
     Active Substance: FOSFOMYCIN
     Indication: Infection
     Dosage: TIME INTERVAL: 0.33333333 DAYS: 2000 MG THRICE A DAY, AS A DUAL THERAPY ALONGSIDE 340 MG TOBRAMYC...
     Route: 042
  5. FOSFOMYCIN [Suspect]
     Active Substance: FOSFOMYCIN
     Indication: Infection
     Dosage: TIME INTERVAL: 0.33333333 DAYS: 2000 MG THRICE A DAY, AS A DUAL THERAPY ALONGSIDE 340 MG TOBRAMYC...
     Route: 042
  6. DEXTROSE [Suspect]
     Active Substance: DEXTROSE\DEXTROSE MONOHYDRATE
     Indication: Product used for unknown indication
     Dosage: TIME INTERVAL: 0.33333333 DAYS: 250 ML THRICE A DAY
     Route: 042
  7. DEXTROSE [Suspect]
     Active Substance: DEXTROSE\DEXTROSE MONOHYDRATE
     Indication: Product used for unknown indication
     Dosage: TIME INTERVAL: 0.33333333 DAYS: 250 ML THRICE A DAY
     Route: 042
  8. COLISTIN SULFATE [Suspect]
     Active Substance: COLISTIN SULFATE
     Indication: Condition aggravated
     Dosage: 2 MU THRICE A DAY
     Route: 042
     Dates: start: 20231130
  9. COLISTIN SULFATE [Suspect]
     Active Substance: COLISTIN SULFATE
     Indication: Condition aggravated
     Dosage: 2 MU THRICE A DAY FOR 8 DAYS
     Route: 042
  10. COLISTIN SULFATE [Suspect]
     Active Substance: COLISTIN SULFATE
     Indication: Condition aggravated
     Dosage: 2 MU THRICE A DAY, AS A DUAL THERAPY ALONGSIDE FOSFOMYCIN FOR 13 DAYS
     Route: 042

REACTIONS (5)
  - Malaise [Unknown]
  - General physical health deterioration [Unknown]
  - Product preparation error [Unknown]
  - Underdose [Unknown]
  - Product dispensing error [Unknown]
